FAERS Safety Report 8424103-X (Version None)
Quarter: 2012Q2

REPORT INFORMATION
  Report Type: 
  Country: None (occurrence: None)
  Receive Date: 20120608
  Receipt Date: 20110422
  Transmission Date: 20120825
  Serious: No
  Sender: FDA-Public Use
  Company Number: US-ASTRAZENECA-2011SE23364

PATIENT
  Age: 81 Year
  Sex: Female

DRUGS (2)
  1. PULMICORT FLEXHALER [Suspect]
     Route: 055
  2. FLOVENT [Concomitant]

REACTIONS (2)
  - DRUG DOSE OMISSION [None]
  - RESPIRATORY DISTRESS [None]
